FAERS Safety Report 14148006 (Version 3)
Quarter: 2017Q4

REPORT INFORMATION
  Report Type: Spontaneous
  Country: US (occurrence: US)
  Receive Date: 20171101
  Receipt Date: 20171219
  Transmission Date: 20180321
  Serious: No
  Sender: FDA-Public Use
  Company Number: US-AMGEN-USASP2017163330

PATIENT
  Sex: Female
  Weight: 80.73 kg

DRUGS (9)
  1. CELEBREX [Concomitant]
     Active Substance: CELECOXIB
     Dosage: UNK
     Dates: start: 201705
  2. ENBREL [Suspect]
     Active Substance: ETANERCEPT
     Indication: PRODUCT USED FOR UNKNOWN INDICATION
     Dosage: UNK
     Route: 065
  3. ZOLOFT [Concomitant]
     Active Substance: SERTRALINE HYDROCHLORIDE
     Dosage: 100 MG, QD
  4. METHOTREXATE. [Suspect]
     Active Substance: METHOTREXATE
     Dosage: 25 MG, QWK
     Route: 065
  5. METHOTREXATE. [Suspect]
     Active Substance: METHOTREXATE
     Indication: PRODUCT USED FOR UNKNOWN INDICATION
     Dosage: UNK
     Route: 065
  6. CALCIUM [Concomitant]
     Active Substance: CALCIUM
     Dosage: 600 MG, UNK
  7. SULFASALAZINE. [Concomitant]
     Active Substance: SULFASALAZINE
     Dosage: UNK
  8. VITAMIN D [Concomitant]
     Active Substance: CHOLECALCIFEROL
  9. COZAAR [Concomitant]
     Active Substance: LOSARTAN POTASSIUM
     Dosage: 25 MG, QD

REACTIONS (30)
  - Anxiety [Unknown]
  - Depression [Unknown]
  - Hypertension [Unknown]
  - Fall [Unknown]
  - Diarrhoea [Unknown]
  - Gastrointestinal disorder [Unknown]
  - Arthropathy [Unknown]
  - Joint crepitation [Unknown]
  - Joint range of motion decreased [Unknown]
  - Malaise [Unknown]
  - Tongue ulceration [Unknown]
  - Infection [Not Recovered/Not Resolved]
  - Arthralgia [Recovering/Resolving]
  - Night sweats [Unknown]
  - Adenomatous polyposis coli [Unknown]
  - Dizziness [Unknown]
  - Fatigue [Unknown]
  - Synovial cyst [Unknown]
  - Mouth ulceration [Unknown]
  - Bursitis [Unknown]
  - Joint effusion [Unknown]
  - Peripheral swelling [Unknown]
  - Mucosal inflammation [Unknown]
  - Insomnia [Unknown]
  - Osteoarthritis [Unknown]
  - Gastrointestinal infection [Unknown]
  - Pain in extremity [Unknown]
  - Musculoskeletal discomfort [Unknown]
  - Adenotonsillectomy [Unknown]
  - Seasonal allergy [Unknown]

NARRATIVE: CASE EVENT DATE: 2016
